FAERS Safety Report 22033951 (Version 1)
Quarter: 2023Q1

REPORT INFORMATION
  Report Type: Spontaneous
  Country: US (occurrence: US)
  Receive Date: 20230224
  Receipt Date: 20230224
  Transmission Date: 20230418
  Serious: No
  Sender: FDA-Public Use
  Company Number: US-MYLANLABS-2023M1012652

PATIENT
  Sex: Female
  Weight: 61.69 kg

DRUGS (1)
  1. ESTRADIOL [Suspect]
     Active Substance: ESTRADIOL
     Indication: Menopause
     Dosage: UNK
     Route: 067
     Dates: end: 20230128

REACTIONS (9)
  - Palpitations [Unknown]
  - Rash [Recovered/Resolved]
  - Headache [Unknown]
  - Abdominal discomfort [Unknown]
  - Discomfort [Unknown]
  - Anxiety [Unknown]
  - Panic attack [Unknown]
  - Faeces discoloured [Unknown]
  - Agitation [Unknown]
